FAERS Safety Report 9555031 (Version 1)
Quarter: 2013Q3

REPORT INFORMATION
  Report Type: Spontaneous
  Country: US (occurrence: None)
  Receive Date: 20130925
  Receipt Date: 20130925
  Transmission Date: 20140515
  Serious: No
  Sender: FDA-Public Use
  Company Number: None

PATIENT
  Age: 51 Year
  Sex: Male
  Weight: 90 kg

DRUGS (2)
  1. RIVAROXABAN [Suspect]
     Indication: DEEP VEIN THROMBOSIS
     Route: 048
     Dates: start: 20130710, end: 20130910
  2. RIVAROXABAN [Suspect]
     Indication: HYPERCOAGULATION
     Route: 048
     Dates: start: 20130710, end: 20130910

REACTIONS (3)
  - Urticaria [None]
  - Pruritus [None]
  - Rash [None]
